FAERS Safety Report 19191708 (Version 4)
Quarter: 2022Q2

REPORT INFORMATION
  Report Type: Spontaneous
  Country: US (occurrence: US)
  Receive Date: 20210428
  Receipt Date: 20220513
  Transmission Date: 20220721
  Serious: No
  Sender: FDA-Public Use
  Company Number: US-PFIZER INC-2021424251

PATIENT
  Age: 58 Year
  Sex: Female

DRUGS (1)
  1. XELJANZ XR [Suspect]
     Active Substance: TOFACITINIB CITRATE
     Indication: Rheumatoid arthritis
     Dosage: 11 MG, DAILY
     Route: 048
     Dates: start: 20210301

REACTIONS (12)
  - Product dose omission issue [Unknown]
  - Incorrect product administration duration [Unknown]
  - Stress [Unknown]
  - Mobility decreased [Unknown]
  - Peripheral swelling [Unknown]
  - Joint swelling [Unknown]
  - Erythema [Unknown]
  - Pain in extremity [Unknown]
  - Burning sensation [Unknown]
  - Gait disturbance [Unknown]
  - Condition aggravated [Unknown]
  - Epicondylitis [Unknown]

NARRATIVE: CASE EVENT DATE: 20210101
